FAERS Safety Report 6439222-7 (Version None)
Quarter: 2009Q4

REPORT INFORMATION
  Report Type: 
  Country: None (occurrence: None)
  Receive Date: 20091113
  Receipt Date: 20091110
  Transmission Date: 20100525
  Serious: Yes (Other)
  Sender: FDA-Public Use
  Company Number: DE-WYE-G04861309

PATIENT

DRUGS (1)
  1. TYGACIL [Suspect]

REACTIONS (1)
  - PATHOGEN RESISTANCE [None]
